FAERS Safety Report 10169126 (Version 1)
Quarter: 2014Q2

REPORT INFORMATION
  Report Type: Spontaneous
  Country: US (occurrence: US)
  Receive Date: 20140513
  Receipt Date: 20140513
  Transmission Date: 20141212
  Serious: No
  Sender: FDA-Public Use
  Company Number: US-TARO-2013P1006112

PATIENT
  Age: 10 Year
  Sex: Male
  Weight: 51.71 kg

DRUGS (3)
  1. CETIRIZINE HCL CHILDREN ORAL SOLUTION ALLERGY 1MG/ML (SUGARFREE GRAPE) [Suspect]
     Indication: SINUS HEADACHE
     Route: 048
  2. CETIRIZINE HCL CHILDREN ORAL SOLUTION ALLERGY 1MG/ML (SUGARFREE GRAPE) [Suspect]
     Indication: SINUS HEADACHE
     Route: 048
     Dates: start: 20130514, end: 20130514
  3. CETIRIZINE HCL CHILDREN ORAL SOLUTION ALLERGY 1MG/ML (SUGARFREE GRAPE) [Suspect]
     Indication: SINUS HEADACHE
     Route: 048
     Dates: start: 20130514, end: 20130514

REACTIONS (2)
  - Drug ineffective for unapproved indication [Unknown]
  - Accidental overdose [Unknown]
